FAERS Safety Report 10144654 (Version 1)
Quarter: 2014Q2

REPORT INFORMATION
  Report Type: Spontaneous
  Country: US (occurrence: US)
  Receive Date: 20140430
  Receipt Date: 20140430
  Transmission Date: 20141212
  Serious: No
  Sender: FDA-Public Use
  Company Number: US-SANOFI-AVENTIS-2013SA079806

PATIENT
  Age: 55 Year
  Sex: Female

DRUGS (2)
  1. ENOXAPARIN SODIUM - WINTHROP [Suspect]
     Indication: HIP ARTHROPLASTY
     Route: 058
     Dates: start: 20130716
  2. DILANTIN [Interacting]
     Route: 065

REACTIONS (4)
  - Carpal tunnel syndrome [Not Recovered/Not Resolved]
  - Anticonvulsant drug level decreased [Unknown]
  - Drug interaction [Unknown]
  - Hypoaesthesia [Not Recovered/Not Resolved]
